FAERS Safety Report 8905671 (Version 1)
Quarter: 2012Q4

REPORT INFORMATION
  Report Type: 
  Country: US (occurrence: US)
  Receive Date: 20121113
  Receipt Date: 20121113
  Transmission Date: 20130627
  Serious: No
  Sender: FDA-Public Use
  Company Number: US-ASTRAZENECA-2012SE84728

PATIENT
  Age: 21425 Day

DRUGS (1)
  1. ZOMIG [Suspect]
     Route: 045

REACTIONS (5)
  - Diarrhoea [Unknown]
  - Hyperhidrosis [Unknown]
  - Chills [Unknown]
  - Sneezing [Unknown]
  - Abdominal pain upper [Unknown]
